FAERS Safety Report 13237344 (Version 2)
Quarter: 2017Q3

REPORT INFORMATION
  Report Type: Report from Study
  Country: US (occurrence: US)
  Receive Date: 20170215
  Receipt Date: 20170725
  Transmission Date: 20171127
  Serious: Yes (Death, Hospitalization)
  Sender: FDA-Public Use
  Company Number: US-EXELIXIS-XL18417008243

PATIENT
  Age: 27 Year
  Sex: Male
  Weight: 79.37 kg

DRUGS (1)
  1. XL184 [Suspect]
     Active Substance: CABOZANTINIB
     Indication: KAPOSI^S SARCOMA
     Dosage: 40 MG, QD
     Route: 048
     Dates: start: 20160120, end: 20170202

REACTIONS (1)
  - Cardiac arrest [Fatal]

NARRATIVE: CASE EVENT DATE: 20170202
